FAERS Safety Report 13109020 (Version 1)
Quarter: 2017Q1

REPORT INFORMATION
  Report Type: Spontaneous
  Country: FR (occurrence: FR)
  Receive Date: 20170112
  Receipt Date: 20170112
  Transmission Date: 20170428
  Serious: Yes (Hospitalization)
  Sender: FDA-Public Use
  Company Number: FR-PFIZER INC-2017008597

PATIENT
  Age: 41 Year
  Sex: Male

DRUGS (4)
  1. SOLU-MEDROL [Suspect]
     Active Substance: METHYLPREDNISOLONE SODIUM SUCCINATE
     Indication: KIDNEY TRANSPLANT REJECTION
     Dosage: 500 MG, 1X/DAY
     Route: 040
     Dates: start: 20141126, end: 20141129
  2. SOLU-MEDROL [Interacting]
     Active Substance: METHYLPREDNISOLONE SODIUM SUCCINATE
     Dosage: UNK
     Route: 040
     Dates: start: 20151216, end: 20151218
  3. CORTANCYL [Interacting]
     Active Substance: PREDNISONE
     Indication: PROPHYLAXIS AGAINST TRANSPLANT REJECTION
     Dosage: 20 MG, 1X/DAY
     Route: 048
     Dates: start: 20121125, end: 20141126
  4. CORTANCYL [Interacting]
     Active Substance: PREDNISONE
     Dosage: 80 MG, DAILY
     Route: 048
     Dates: start: 20141130

REACTIONS (2)
  - Drug interaction [Recovered/Resolved with Sequelae]
  - Diabetes mellitus [Recovered/Resolved with Sequelae]

NARRATIVE: CASE EVENT DATE: 201411
